FAERS Safety Report 18549690 (Version 2)
Quarter: 2020Q4

REPORT INFORMATION
  Report Type: Report from Study
  Country: None (occurrence: SE)
  Receive Date: 20201126
  Receipt Date: 20201205
  Transmission Date: 20210114
  Serious: Yes (Hospitalization, Other)
  Sender: FDA-Public Use
  Company Number: SE-ABBVIE-20K-150-3654192-00

PATIENT
  Age: 52 Year
  Sex: Male
  Weight: 82 kg

DRUGS (14)
  1. DUODOPA [Suspect]
     Active Substance: CARBIDOPA\LEVODOPA
     Dosage: DOSE INCREASED, CONTINUOUS DOSE INCREASED FROM 3.3 ML/H TO 3.4 ML/H.
     Route: 050
     Dates: start: 2020, end: 2020
  2. LITHIUM. [Concomitant]
     Active Substance: LITHIUM
     Route: 048
     Dates: start: 2020
  3. DUODOPA [Suspect]
     Active Substance: CARBIDOPA\LEVODOPA
     Dosage: CURRENT DOSAGE: MORNING DOSE 6ML.
     Route: 050
     Dates: start: 20201130
  4. DUODOPA [Suspect]
     Active Substance: CARBIDOPA\LEVODOPA
     Dosage: CURRENT DOSAGE: CONTINUOUS DOSE: 3.3 ML/H.
     Route: 050
     Dates: start: 20201119, end: 202011
  5. LEVAXIN [Concomitant]
     Active Substance: LEVOTHYROXINE SODIUM
     Indication: PRODUCT USED FOR UNKNOWN INDICATION
  6. VITAMIN B12 [Concomitant]
     Active Substance: CYANOCOBALAMIN
     Indication: PRODUCT USED FOR UNKNOWN INDICATION
  7. DUODOPA [Suspect]
     Active Substance: CARBIDOPA\LEVODOPA
     Indication: PARKINSON^S DISEASE
     Dosage: THERAPY DURATION: REMAINED AT 16 HOUR.
     Route: 050
     Dates: start: 20150831
  8. LITHIUM. [Concomitant]
     Active Substance: LITHIUM
     Indication: PSYCHOTIC DISORDER
     Route: 048
  9. ZOPIKLON [Concomitant]
     Active Substance: ZOPICLONE
     Indication: PRODUCT USED FOR UNKNOWN INDICATION
     Dosage: AT NIGHT
  10. MIRTAZAPIN [Concomitant]
     Active Substance: MIRTAZAPINE
     Indication: PRODUCT USED FOR UNKNOWN INDICATION
  11. FOLIC ACID. [Concomitant]
     Active Substance: FOLIC ACID
     Indication: PRODUCT USED FOR UNKNOWN INDICATION
  12. MADOPARK [Concomitant]
     Active Substance: BENSERAZIDE HYDROCHLORIDE\LEVODOPA
     Indication: PRODUCT USED FOR UNKNOWN INDICATION
     Dosage: AT NIGHT
  13. LITAREX [Concomitant]
     Indication: PRODUCT USED FOR UNKNOWN INDICATION
  14. BEVIPLEX [Concomitant]
     Indication: PRODUCT USED FOR UNKNOWN INDICATION

REACTIONS (5)
  - Loss of consciousness [Unknown]
  - Hallucination [Unknown]
  - Psychotic disorder [Recovered/Resolved]
  - Hallucination [Recovered/Resolved]
  - Psychotic disorder [Unknown]

NARRATIVE: CASE EVENT DATE: 2015
